FAERS Safety Report 9665870 (Version 1)
Quarter: 2013Q4

REPORT INFORMATION
  Report Type: Spontaneous
  Country: US (occurrence: None)
  Receive Date: 20131101
  Receipt Date: 20131101
  Transmission Date: 20140711
  Serious: Yes (Other)
  Sender: FDA-Public Use
  Company Number: None

PATIENT
  Age: 58 Year
  Sex: Female
  Weight: 119.75 kg

DRUGS (1)
  1. ERYTHROMYCIN 500 MG FILM TAB [Suspect]
     Indication: ENDODONTIC PROCEDURE
     Dates: start: 20131024, end: 20131031

REACTIONS (6)
  - Abdominal pain upper [None]
  - Faeces discoloured [None]
  - Malaise [None]
  - Joint swelling [None]
  - Dizziness [None]
  - Malaise [None]
